FAERS Safety Report 5920074-6 (Version None)
Quarter: 2008Q4

REPORT INFORMATION
  Report Type: 
  Country: None (occurrence: None)
  Receive Date: 20081014
  Receipt Date: 20081002
  Transmission Date: 20090506
  Serious: Yes (Death, Hospitalization)
  Sender: FDA-Public Use
  Company Number: 2008AL009541

PATIENT
  Age: 79 Year
  Sex: Female
  Weight: 93.8946 kg

DRUGS (18)
  1. DIGOXIN [Suspect]
     Indication: ATRIAL FIBRILLATION
     Dosage: 0.25MG, DAILY; PO
     Route: 048
     Dates: start: 20071213, end: 20071229
  2. ASPIRIN [Concomitant]
  3. ACTOS [Concomitant]
  4. CARDIZEM CD [Concomitant]
  5. CRESTOR [Concomitant]
  6. SINGULAIR [Concomitant]
  7. HUMULIN N [Concomitant]
  8. TIMOLOL [Concomitant]
  9. ALPHAGAN [Concomitant]
  10. LUMIGAN [Concomitant]
  11. AZOPT [Concomitant]
  12. VITAMINS [Concomitant]
  13. FLONASE [Concomitant]
  14. COREG [Concomitant]
  15. METOLAZONE [Concomitant]
  16. LASIX [Concomitant]
  17. HUMALOG [Concomitant]
  18. FUROSEMIDE [Concomitant]

REACTIONS (25)
  - ASTHENIA [None]
  - BLOOD CHLORIDE DECREASED [None]
  - BLOOD GLUCOSE INCREASED [None]
  - BLOOD UREA INCREASED [None]
  - BRADYCARDIA [None]
  - BUNDLE BRANCH BLOCK RIGHT [None]
  - CARBON DIOXIDE DECREASED [None]
  - CARBON DIOXIDE INCREASED [None]
  - CARDIAC FAILURE CONGESTIVE [None]
  - CARDIOMEGALY [None]
  - CHEST PAIN [None]
  - DIABETES MELLITUS [None]
  - DIABETIC GASTROPARESIS [None]
  - DYSPNOEA [None]
  - HYPOKALAEMIA [None]
  - JOINT SWELLING [None]
  - MYOCARDIAL INFARCTION [None]
  - NEUROPATHY PERIPHERAL [None]
  - OEDEMA PERIPHERAL [None]
  - ORTHOPNOEA [None]
  - ORTHOSTATIC HYPOTENSION [None]
  - OVERDOSE [None]
  - OXYGEN SATURATION DECREASED [None]
  - THERAPEUTIC AGENT TOXICITY [None]
  - THROAT TIGHTNESS [None]
